FAERS Safety Report 9684529 (Version 1)
Quarter: 2013Q4

REPORT INFORMATION
  Report Type: Spontaneous
  Country: DE (occurrence: DE)
  Receive Date: 20131112
  Receipt Date: 20131112
  Transmission Date: 20140711
  Serious: Yes (Hospitalization)
  Sender: FDA-Public Use
  Company Number: GXKR2013DE003509

PATIENT
  Age: 27 Year
  Sex: Female
  Weight: 55 kg

DRUGS (2)
  1. ERYTHROMYCIN [Suspect]
     Indication: RESPIRATORY TRACT INFECTION
     Dosage: 1000 MG, BID (0-1-1)
     Route: 048
     Dates: start: 20131026
  2. PANTOPRAZOL [Concomitant]
     Route: 048
     Dates: start: 20131026

REACTIONS (3)
  - Oedematous pancreatitis [Unknown]
  - Abdominal pain upper [Unknown]
  - Lipase increased [Unknown]
